FAERS Safety Report 6187767-X (Version None)
Quarter: 2009Q2

REPORT INFORMATION
  Report Type: 
  Country: None (occurrence: None)
  Receive Date: 20090511
  Receipt Date: 20090511
  Transmission Date: 20091009
  Serious: Yes (Life-Threatening, Hospitalization, Disabling)
  Sender: FDA-Public Use
  Company Number: None

PATIENT
  Sex: Female
  Weight: 73.9363 kg

DRUGS (5)
  1. CLONODINE 0.3 BOEHRINGER INGELHEIM [Suspect]
     Indication: HYPERTENSION
     Dosage: 0.3 3XS DAILY
  2. CATAPRES-TTS-3 [Suspect]
     Indication: HYPERTENSION
     Dosage: 0.3 ONCE A WEEK
     Dates: start: 20010101, end: 20080101
  3. HYDRALAZINE HCL [Concomitant]
  4. HYDROCHLOROTHIAZIDE [Concomitant]
  5. LEBATALOL [Concomitant]

REACTIONS (5)
  - APPLICATION SITE BURN [None]
  - BLOOD PRESSURE INCREASED [None]
  - CEREBROVASCULAR ACCIDENT [None]
  - HALLUCINATIONS, MIXED [None]
  - REBOUND EFFECT [None]
